FAERS Safety Report 18166469 (Version 3)
Quarter: 2023Q2

REPORT INFORMATION
  Report Type: Spontaneous
  Country: US (occurrence: US)
  Receive Date: 20200818
  Receipt Date: 20230517
  Transmission Date: 20230721
  Serious: Yes (Death, Other)
  Sender: FDA-Public Use
  Company Number: US-GILEAD-2020-0490474

PATIENT
  Sex: Female

DRUGS (49)
  1. VIREAD [Suspect]
     Active Substance: TENOFOVIR DISOPROXIL FUMARATE
     Indication: HIV infection
     Dosage: UNK
     Route: 048
     Dates: start: 2001
  2. VIREAD [Suspect]
     Active Substance: TENOFOVIR DISOPROXIL FUMARATE
     Dosage: UNK
     Route: 048
     Dates: start: 2006, end: 201608
  3. ISENTRESS [Concomitant]
     Active Substance: RALTEGRAVIR POTASSIUM
     Indication: HIV infection
  4. PREZISTA [Concomitant]
     Active Substance: DARUNAVIR ETHANOLATE
     Indication: HIV infection
  5. VIRAMUNE [Concomitant]
     Active Substance: NEVIRAPINE
     Indication: HIV infection
  6. ZERIT [Concomitant]
     Active Substance: STAVUDINE
  7. EDURANT [Concomitant]
     Active Substance: RILPIVIRINE HYDROCHLORIDE
     Indication: HIV infection
  8. LISINOPRIL [Concomitant]
     Active Substance: LISINOPRIL
  9. LIPITOR [Concomitant]
     Active Substance: ATORVASTATIN CALCIUM
  10. NIFEDIPINE [Concomitant]
     Active Substance: NIFEDIPINE
  11. LANTUS [Concomitant]
     Active Substance: INSULIN GLARGINE
  12. PREVACID [Concomitant]
     Active Substance: LANSOPRAZOLE
  13. ASPIRIN\HYDROCODONE BITARTRATE [Concomitant]
     Active Substance: ASPIRIN\HYDROCODONE BITARTRATE
  14. CELEBREX [Concomitant]
     Active Substance: CELECOXIB
  15. SENSIPAR [Concomitant]
     Active Substance: CINACALCET HYDROCHLORIDE
  16. CRIXIVAN [Concomitant]
     Active Substance: INDINAVIR SULFATE
     Indication: HIV infection
  17. INSULIN NOS [Concomitant]
     Active Substance: INSULIN NOS
  18. LEVAQUIN [Concomitant]
     Active Substance: LEVOFLOXACIN
  19. AMLODIPINE [Concomitant]
     Active Substance: AMLODIPINE BESYLATE
  20. NUCYNTA [Concomitant]
     Active Substance: TAPENTADOL HYDROCHLORIDE
  21. DIOVAN [Concomitant]
     Active Substance: VALSARTAN
  22. RENVELA [Concomitant]
     Active Substance: SEVELAMER CARBONATE
  23. ALUMINUM HYDROXIDE\MAGNESIUM CARBONATE [Concomitant]
     Active Substance: ALUMINUM HYDROXIDE\MAGNESIUM CARBONATE
  24. BACTRIM [Concomitant]
     Active Substance: SULFAMETHOXAZOLE\TRIMETHOPRIM
  25. ZOCOR [Concomitant]
     Active Substance: SIMVASTATIN
  26. TYLENOL [Concomitant]
     Active Substance: ACETAMINOPHEN
  27. FLONASE ALLERGY RELIEF [Concomitant]
     Active Substance: FLUTICASONE PROPIONATE
  28. ADVAIR HFA [Concomitant]
     Active Substance: FLUTICASONE PROPIONATE\SALMETEROL XINAFOATE
  29. HEPARIN [Concomitant]
     Active Substance: HEPARIN SODIUM
  30. ALBUTEROL SULFATE [Concomitant]
     Active Substance: ALBUTEROL SULFATE
  31. ZOSYN [Concomitant]
     Active Substance: PIPERACILLIN SODIUM\TAZOBACTAM SODIUM
  32. PLAVIX [Concomitant]
     Active Substance: CLOPIDOGREL BISULFATE
  33. TOPROL XL [Concomitant]
     Active Substance: METOPROLOL SUCCINATE
  34. AURYXIA [Concomitant]
     Active Substance: TETRAFERRIC TRICITRATE DECAHYDRATE
  35. SULFAMETHOXAZOLE [Concomitant]
     Active Substance: SULFAMETHOXAZOLE
  36. LORATADINE\PSEUDOEPHEDRINE SULFATE [Concomitant]
     Active Substance: LORATADINE\PSEUDOEPHEDRINE SULFATE
  37. MONTELUKAST SODIUM [Concomitant]
     Active Substance: MONTELUKAST SODIUM
  38. BEPREVE [Concomitant]
     Active Substance: BEPOTASTINE BESILATE
  39. AZELASTINE [Concomitant]
     Active Substance: AZELASTINE
  40. QVAR [Concomitant]
     Active Substance: BECLOMETHASONE DIPROPIONATE
  41. FENTANYL [Concomitant]
     Active Substance: FENTANYL
  42. PRAVACHOL [Concomitant]
     Active Substance: PRAVASTATIN SODIUM
  43. ONDANSETRON [Concomitant]
     Active Substance: ONDANSETRON
  44. COUMADIN [Concomitant]
     Active Substance: WARFARIN SODIUM
  45. NYSTATIN [Concomitant]
     Active Substance: NYSTATIN
  46. AZITHROMYCIN [Concomitant]
     Active Substance: AZITHROMYCIN
  47. CALCIUM LACTATE\CALCIUM PHOSPHATE\CHOLECALCIFEROL [Concomitant]
     Active Substance: CALCIUM LACTATE\CALCIUM PHOSPHATE\CHOLECALCIFEROL
  48. EPIVIR [Concomitant]
     Active Substance: LAMIVUDINE
  49. RENAGEL [SEVELAMER CARBONATE] [Concomitant]

REACTIONS (10)
  - Death [Fatal]
  - End stage renal disease [Recovered/Resolved]
  - Chronic kidney disease-mineral and bone disorder [Recovered/Resolved]
  - Renal failure [Unknown]
  - Emotional distress [Unknown]
  - Anhedonia [Unknown]
  - Anxiety [Unknown]
  - Pain [Unknown]
  - Hyperparathyroidism [Recovered/Resolved]
  - Nephropathy [Unknown]

NARRATIVE: CASE EVENT DATE: 20090101
